FAERS Safety Report 10244076 (Version 1)
Quarter: 2014Q2

REPORT INFORMATION
  Report Type: Spontaneous
  Country: PL (occurrence: None)
  Receive Date: 20140616
  Receipt Date: 20140616
  Transmission Date: 20141212
  Serious: Yes (Other)
  Sender: FDA-Public Use
  Company Number: 2014PL002658

PATIENT
  Age: 60 Year
  Sex: Male
  Weight: 76 kg

DRUGS (2)
  1. ELIGARD (LEUPROLIDE ACETATE) INJECTION, 22.5 MG [Suspect]
     Indication: PROSTATE CANCER
     Route: 058
     Dates: start: 201307
  2. ELIGARD [Suspect]
     Indication: PROSTATE CANCER
     Route: 058
     Dates: start: 20131127

REACTIONS (4)
  - Prostatic specific antigen increased [None]
  - Malignant neoplasm progression [None]
  - Prostate cancer [None]
  - Product quality issue [None]
